FAERS Safety Report 9539579 (Version 5)
Quarter: 2013Q4

REPORT INFORMATION
  Report Type: Report from Study
  Country: US (occurrence: US)
  Receive Date: 20130920
  Receipt Date: 20131227
  Transmission Date: 20140711
  Serious: Yes (Other)
  Sender: FDA-Public Use
  Company Number: US-JNJFOC-20130908993

PATIENT
  Age: 19 Year
  Sex: Male
  Weight: 68.9 kg

DRUGS (6)
  1. REMICADE [Suspect]
     Indication: INFLAMMATORY BOWEL DISEASE
     Route: 042
     Dates: start: 20070315, end: 20070529
  2. HUMIRA [Concomitant]
     Indication: INFLAMMATORY BOWEL DISEASE
     Route: 065
     Dates: start: 20070711
  3. PROBIOTICS [Concomitant]
     Indication: INFLAMMATORY BOWEL DISEASE
     Route: 065
  4. MINOCYCLINE [Concomitant]
     Route: 065
  5. CLINDAMYCIN [Concomitant]
     Route: 065
  6. MUPIROCIN [Concomitant]
     Route: 065

REACTIONS (1)
  - Anal fistula [Recovered/Resolved]
